FAERS Safety Report 9467008 (Version 2)
Quarter: 2013Q3

REPORT INFORMATION
  Report Type: Report from Study
  Country: CA (occurrence: CA)
  Receive Date: 20130820
  Receipt Date: 20130904
  Transmission Date: 20140515
  Serious: Yes (Death, Hospitalization)
  Sender: FDA-Public Use
  Company Number: CA-GLAXOSMITHKLINE-A1014045A

PATIENT
  Age: 50 Year
  Sex: Female
  Weight: 66.3 kg

DRUGS (2)
  1. TRAMETINIB [Suspect]
     Indication: LUNG ADENOCARCINOMA METASTATIC
     Dosage: 1.5MG PER DAY
     Route: 048
     Dates: start: 20130118, end: 20130704
  2. INVESTIGATIONAL STUDY DRUG [Suspect]
     Indication: LUNG ADENOCARCINOMA METASTATIC
     Dosage: 60MG PER DAY
     Route: 048
     Dates: start: 20130118, end: 20130704

REACTIONS (3)
  - Malignant neoplasm progression [Fatal]
  - Pneumothorax [Recovered/Resolved]
  - Pleural effusion [Fatal]
